FAERS Safety Report 13977084 (Version 1)
Quarter: 2017Q3

REPORT INFORMATION
  Report Type: Spontaneous
  Country: US (occurrence: US)
  Receive Date: 20170915
  Receipt Date: 20170915
  Transmission Date: 20171128
  Serious: No
  Sender: FDA-Public Use
  Company Number: US-ROCHE-714733

PATIENT

DRUGS (1)
  1. HERCEPTIN [Suspect]
     Active Substance: TRASTUZUMAB
     Indication: PRODUCT USED FOR UNKNOWN INDICATION
     Dosage: LAST DOSE PRIOR TO SAE- 16 JUNE
     Route: 065

REACTIONS (3)
  - Nail discolouration [Not Recovered/Not Resolved]
  - Onychoclasis [Not Recovered/Not Resolved]
  - Nail disorder [Not Recovered/Not Resolved]
